FAERS Safety Report 11254350 (Version 1)
Quarter: 2015Q3

REPORT INFORMATION
  Report Type: Spontaneous
  Country: IT (occurrence: IT)
  Receive Date: 20150709
  Receipt Date: 20150709
  Transmission Date: 20151125
  Serious: Yes (Death)
  Sender: FDA-Public Use
  Company Number: IT-CIPLA LTD.-2015IT05474

PATIENT

DRUGS (5)
  1. CEFOTAXIME [Suspect]
     Active Substance: CEFOTAXIME SODIUM
     Indication: MENINGITIS BACTERIAL
     Dosage: 4 G, UNK
     Route: 065
  2. DEXAMETHASONE. [Suspect]
     Active Substance: DEXAMETHASONE
     Indication: MENINGITIS BACTERIAL
     Dosage: 10 MG, UNK
     Route: 065
  3. DEXAMETHASONE. [Suspect]
     Active Substance: DEXAMETHASONE
     Dosage: 0.15 MG/KG, EVERY 6 HOURS FOR 96 HOURS
     Route: 065
  4. LEVOFLOXACIN. [Suspect]
     Active Substance: LEVOFLOXACIN
     Indication: MENINGITIS BACTERIAL
     Dosage: 500 MG EVERY 12 HOURS OR 750 MG EVERY 24 HOURS OR 500 MG EVERY 24 TO 48 HOURS
     Route: 065
  5. CEFTRIAXONE. [Suspect]
     Active Substance: CEFTRIAXONE
     Indication: MENINGITIS BACTERIAL
     Dosage: 2 G, UNK
     Route: 065

REACTIONS (1)
  - Meningitis bacterial [Fatal]
